FAERS Safety Report 8155135-7 (Version None)
Quarter: 2012Q1

REPORT INFORMATION
  Report Type: 
  Country: None (occurrence: None)
  Receive Date: 20120221
  Receipt Date: 20120214
  Transmission Date: 20120608
  Serious: Yes (Hospitalization)
  Sender: FDA-Public Use
  Company Number: BR-ASTRAZENECA-2012SE10341

PATIENT
  Age: 43 Year
  Sex: Female
  Weight: 97 kg

DRUGS (3)
  1. SYMBICORT [Suspect]
     Dosage: 320/9 MCG PRN
     Route: 055
     Dates: start: 20080101, end: 20110101
  2. SYMBICORT [Suspect]
     Indication: ASTHMA
     Dosage: 320/9 MCG TWO TIMES A DAY
     Route: 055
     Dates: start: 20080101, end: 20110101
  3. CAPTOPRIL [Concomitant]
     Indication: HYPERTENSION
     Route: 048
     Dates: start: 20050101, end: 20100701

REACTIONS (2)
  - ASTHMA [None]
  - WEIGHT LOSS POOR [None]
